FAERS Safety Report 12883244 (Version 1)
Quarter: 2016Q4

REPORT INFORMATION
  Report Type: Spontaneous
  Country: IT (occurrence: IT)
  Receive Date: 20161025
  Receipt Date: 20161025
  Transmission Date: 20170207
  Serious: Yes (Other)
  Sender: FDA-Public Use
  Company Number: IT-ALLERGAN-1673276US

PATIENT
  Age: 83 Year
  Sex: Female

DRUGS (1)
  1. OZURDEX [Suspect]
     Active Substance: DEXAMETHASONE
     Indication: MACULAR OEDEMA
     Dosage: 0.7 MG, SINGLE
     Route: 031

REACTIONS (5)
  - Blindness unilateral [Recovering/Resolving]
  - Eye pain [Unknown]
  - Conjunctival hyperaemia [Recovering/Resolving]
  - Device dislocation [Unknown]
  - Corneal oedema [Recovering/Resolving]
